FAERS Safety Report 12822262 (Version 2)
Quarter: 2016Q4

REPORT INFORMATION
  Report Type: Not Available
  Country: US (occurrence: US)
  Receive Date: 20161006
  Receipt Date: 20161012
  Transmission Date: 20170207
  Serious: Yes (Other)
  Sender: FDA-Public Use
  Company Number: US-ANIPHARMA-2016-US-007842

PATIENT
  Age: 45 Year
  Sex: Female
  Weight: 58.06 kg

DRUGS (3)
  1. WELLBUTRIN XL [Suspect]
     Active Substance: BUPROPION HYDROCHLORIDE
     Dosage: UNKNOWN
     Route: 048
  2. SINGULAIR [Concomitant]
     Active Substance: MONTELUKAST SODIUM
     Dosage: UNKNOWN
     Route: 048
  3. FLUVOXAMINE MALEATE 50 MG [Suspect]
     Active Substance: FLUVOXAMINE MALEATE
     Dosage: 75 MG DAILY
     Route: 048
     Dates: start: 200810

REACTIONS (12)
  - Seizure [Unknown]
  - Loss of consciousness [Unknown]
  - Aphasia [Unknown]
  - Dizziness [Unknown]
  - Hypoaesthesia [Unknown]
  - Syncope [Unknown]
  - Dysphemia [Unknown]
  - Lethargy [Unknown]
  - Head discomfort [Unknown]
  - Paralysis [Unknown]
  - Incoherent [Unknown]
  - Muscle twitching [Unknown]

NARRATIVE: CASE EVENT DATE: 20160812
